FAERS Safety Report 7288989-7 (Version None)
Quarter: 2011Q1

REPORT INFORMATION
  Report Type: 
  Country: None (occurrence: None)
  Receive Date: 20110211
  Receipt Date: 20110201
  Transmission Date: 20110831
  Serious: Yes (Other)
  Sender: FDA-Public Use
  Company Number: PHHY2011GB07823

PATIENT
  Age: 60 Year
  Sex: Female

DRUGS (15)
  1. CHLORPHENAMINE [Concomitant]
     Dosage: 4 MG, QID
  2. LACRI-LUBE [Concomitant]
  3. LANSOPRAZOLE [Concomitant]
     Dosage: 30 MG, QD
  4. LEVOTHYROXINE SODIUM [Concomitant]
     Dosage: 25 UG, QD
  5. PREDNISONE TAB [Concomitant]
     Dosage: 5 MG, QD
  6. TERBUTALINE [Concomitant]
  7. 5-FU HEXAL [Suspect]
     Indication: OESOPHAGEAL CARCINOMA
     Dosage: 18000 MG, UNK
     Route: 042
     Dates: start: 20101221, end: 20101227
  8. CISPLATIN [Concomitant]
     Dosage: 143 MG, UNK
     Route: 042
     Dates: start: 20101221, end: 20110111
  9. DEXAMETHASONE [Concomitant]
     Dosage: 4 MG, BID
  10. LATANOPROST [Concomitant]
     Dosage: ONCE A DAY
  11. SYMBICORT [Concomitant]
     Dosage: 2 DF, BID
  12. APREPITANT [Concomitant]
     Dosage: 80 MG, QD
  13. CHLORAMPHENICOL [Concomitant]
     Dosage: 1 DF, QID
  14. COSOPT [Concomitant]
     Dosage: 2 DF, BID
  15. CYCLIZINE [Concomitant]
     Dosage: 50 MG, TID

REACTIONS (7)
  - NAUSEA [None]
  - VOMITING [None]
  - PYREXIA [None]
  - DIARRHOEA [None]
  - RASH ERYTHEMATOUS [None]
  - RASH [None]
  - TACHYCARDIA [None]
